FAERS Safety Report 6456731-5 (Version None)
Quarter: 2009Q4

REPORT INFORMATION
  Report Type: 
  Country: None (occurrence: None)
  Receive Date: 20091120
  Receipt Date: 20091108
  Transmission Date: 20100525
  Serious: Yes (Hospitalization)
  Sender: FDA-Public Use
  Company Number: 2009SP003010

PATIENT
  Sex: Male

DRUGS (2)
  1. XOPENEX [Suspect]
     Indication: ASTHMA
     Dosage: ; QD; INHALATION
     Route: 055
     Dates: end: 20070101
  2. XOPENEX [Suspect]
     Indication: ASTHMA
     Dosage: ; QD; INHALATION
     Route: 055
     Dates: start: 20070101

REACTIONS (3)
  - ATELECTASIS [None]
  - HEART RATE [None]
  - PNEUMONIA [None]
